FAERS Safety Report 21551119 (Version 1)
Quarter: 2022Q4

REPORT INFORMATION
  Report Type: Spontaneous
  Country: US (occurrence: None)
  Receive Date: 20221102
  Receipt Date: 20221102
  Transmission Date: 20230112
  Serious: Yes (Hospitalization)
  Sender: FDA-Public Use
  Company Number: None

PATIENT
  Sex: Female

DRUGS (1)
  1. MYOBLOC [Suspect]
     Active Substance: RIMABOTULINUMTOXINB
     Indication: Parkinson^s disease
     Dosage: OTHER QUANTITY : 2500 UNITS;?OTHER FREQUENCY : EVERY 12 WEEKS;?
     Route: 030
     Dates: start: 20220713

REACTIONS (1)
  - Parkinson^s disease [None]
